FAERS Safety Report 10599186 (Version 2)
Quarter: 2015Q1

REPORT INFORMATION
  Report Type: Spontaneous
  Country: FR (occurrence: FR)
  Receive Date: 20141121
  Receipt Date: 20150310
  Transmission Date: 20150720
  Serious: Yes (Hospitalization, Other)
  Sender: FDA-Public Use
  Company Number: PHHY2014FR149717

PATIENT
  Age: 10 Year
  Sex: Female
  Weight: 36.5 kg

DRUGS (7)
  1. ZOPHREN [Concomitant]
     Active Substance: ONDANSETRON
     Indication: VOMITING
  2. ZOPHREN [Concomitant]
     Active Substance: ONDANSETRON
     Indication: NAUSEA
     Route: 065
  3. NEORAL [Suspect]
     Active Substance: CYCLOSPORINE
     Indication: APLASTIC ANAEMIA
     Dosage: 110 MG, BID
     Route: 065
     Dates: start: 20131224, end: 201401
  4. ATGAM [Suspect]
     Active Substance: EQUINE THYMOCYTE IMMUNE GLOBULIN
     Indication: APLASTIC ANAEMIA
     Dosage: 40 MG/KG, QD
     Route: 042
     Dates: start: 20131219, end: 20131222
  5. ATGAM [Suspect]
     Active Substance: EQUINE THYMOCYTE IMMUNE GLOBULIN
     Dosage: UNK
     Route: 042
     Dates: start: 20140613
  6. VOGALENE [Concomitant]
     Active Substance: METOPIMAZINE
     Indication: NAUSEA
     Route: 065
  7. VOGALENE [Concomitant]
     Active Substance: METOPIMAZINE
     Indication: VOMITING

REACTIONS (9)
  - Meningorrhagia [Unknown]
  - Seizure [Unknown]
  - Haemoglobin decreased [Unknown]
  - White blood cell count decreased [Unknown]
  - Encephalitis [Recovered/Resolved]
  - Toxic skin eruption [Unknown]
  - Lung disorder [Recovered/Resolved]
  - Hyperthermia [Recovered/Resolved]
  - Acute respiratory distress syndrome [Recovered/Resolved]

NARRATIVE: CASE EVENT DATE: 20131227
